FAERS Safety Report 13476188 (Version 2)
Quarter: 2017Q2

REPORT INFORMATION
  Report Type: Spontaneous
  Country: JP (occurrence: JP)
  Receive Date: 20170425
  Receipt Date: 20170523
  Transmission Date: 20170830
  Serious: Yes (Other)
  Sender: FDA-Public Use
  Company Number: JP-SA-2017SA074528

PATIENT
  Age: 72 Year
  Sex: Male

DRUGS (2)
  1. IMMUCYST [Suspect]
     Active Substance: BACILLUS CALMETTE-GUERIN SUBSTRAIN CONNAUGHT LIVE ANTIGEN
     Indication: BLADDER CANCER
     Dosage: BACILLUS CALMETTE-GUERIN (BCG) INTRAVESICAL INSTILLATION THERAPY
     Route: 043
  2. BCG FOR IMMUNOTHERAPY [Suspect]
     Active Substance: BACILLUS CALMETTE-GUERIN ANTIGEN, UNSPECIFIED SUBSTRAIN
     Indication: BLADDER CANCER
     Route: 043

REACTIONS (6)
  - Inflammation [Unknown]
  - Back pain [Unknown]
  - Abscess [Unknown]
  - Intervertebral disc disorder [Unknown]
  - Infective spondylitis [Unknown]
  - Pyrexia [Unknown]
